FAERS Safety Report 19761156 (Version 1)
Quarter: 2021Q3

REPORT INFORMATION
  Report Type: Spontaneous
  Country: RS (occurrence: RS)
  Receive Date: 20210830
  Receipt Date: 20210830
  Transmission Date: 20211014
  Serious: Yes (Hospitalization)
  Sender: FDA-Public Use
  Company Number: RS-STRIDES ARCOLAB LIMITED-2021SP026930

PATIENT
  Age: 66 Year
  Sex: Male

DRUGS (5)
  1. HYDROCHLOROTHIAZIDE. [Concomitant]
     Active Substance: HYDROCHLOROTHIAZIDE
     Indication: HYPERTENSION
     Dosage: 10 MILLIGRAM, QD (1 TIMES 1)
     Route: 065
  2. PREDNISOLONE. [Suspect]
     Active Substance: PREDNISOLONE
     Indication: MYASTHENIA GRAVIS
     Dosage: 20 MILLIGRAM (1 TIMES 1 EVERY SECOND DAY)
     Route: 065
  3. IMURAN [Suspect]
     Active Substance: AZATHIOPRINE
     Indication: MYASTHENIA GRAVIS
     Dosage: 100 MILLIGRAM (2 TIMES 1)
     Route: 065
  4. MESTINON [Suspect]
     Active Substance: PYRIDOSTIGMINE BROMIDE
     Indication: MYASTHENIA GRAVIS
     Dosage: 60 MILLIGRAM ( 5 TIMES 1)
     Route: 065
  5. LISINOPRIL. [Concomitant]
     Active Substance: LISINOPRIL
     Indication: HYPERTENSION
     Dosage: 10 MILLIGRAM, QD (1 TIMES 1)
     Route: 065

REACTIONS (5)
  - Thoracic vertebral fracture [Unknown]
  - Brain stem ischaemia [Unknown]
  - Myelopathy [Unknown]
  - Intervertebral disc protrusion [Unknown]
  - Brain stem infarction [Unknown]
